FAERS Safety Report 14764540 (Version 1)
Quarter: 2018Q2

REPORT INFORMATION
  Report Type: Spontaneous
  Country: HR (occurrence: HR)
  Receive Date: 20180416
  Receipt Date: 20180416
  Transmission Date: 20180711
  Serious: Yes (Other)
  Sender: FDA-Public Use
  Company Number: HR-009507513-1804HRV003653

PATIENT
  Age: 42 Year
  Sex: Female
  Weight: 60 kg

DRUGS (2)
  1. ELONVA [Concomitant]
     Active Substance: CORIFOLLITROPIN ALFA
     Dosage: 150 MICROGRAM, QD
     Dates: start: 201803, end: 201803
  2. ORGALUTRAN [Suspect]
     Active Substance: GANIRELIX ACETATE
     Indication: ASSISTED FERTILISATION
     Dosage: 0,25MG; 1 AMPOULE PER DAY
     Route: 058
     Dates: start: 201803, end: 201803

REACTIONS (2)
  - Premature follicular ripening [Recovered/Resolved]
  - Drug ineffective [Recovered/Resolved]

NARRATIVE: CASE EVENT DATE: 20180310
